FAERS Safety Report 4515192-3 (Version None)
Quarter: 2004Q4

REPORT INFORMATION
  Report Type: 
  Country: None (occurrence: None)
  Receive Date: 20041201
  Receipt Date: 20030225
  Transmission Date: 20050328
  Serious: Yes (Disabling, Congenital Anomaly)
  Sender: FDA-Public Use
  Company Number: FR-GLAXOSMITHKLINE-B0293788A

PATIENT
  Age: 0 Day
  Sex: Female
  Weight: 2.3 kg

DRUGS (7)
  1. DEROXAT [Suspect]
     Dosage: 20MG PER DAY
     Dates: end: 20020927
  2. ECAZIDE [Suspect]
     Indication: HYPERTENSION
     Dosage: 1TAB PER DAY
     Dates: end: 20020927
  3. TERCIAN [Suspect]
     Dates: end: 20020927
  4. XANAX [Suspect]
  5. INSULIN [Suspect]
     Indication: DIABETES MELLITUS
  6. CAPTOPRIL [Suspect]
     Indication: HYPERTENSION
     Dosage: 50MG PER DAY
     Dates: end: 20020927
  7. ATENOLOL [Concomitant]
     Indication: HYPERTENSION
     Dosage: 100MG PER DAY
     Dates: start: 20020927

REACTIONS (10)
  - AMNIOTIC FLUID VOLUME DECREASED [None]
  - CAESAREAN SECTION [None]
  - CONGENITAL VENTRICULAR SEPTAL DEFECT [None]
  - DOUBLE OUTLET RIGHT VENTRICLE [None]
  - DRUG EXPOSURE DURING PREGNANCY [None]
  - HEART DISEASE CONGENITAL [None]
  - PLACENTAL DISORDER [None]
  - PULMONARY VALVE STENOSIS [None]
  - SMALL FOR DATES BABY [None]
  - TRANSPOSITION OF THE GREAT VESSELS [None]
